FAERS Safety Report 12949578 (Version 1)
Quarter: 2016Q4

REPORT INFORMATION
  Report Type: Spontaneous
  Country: IT (occurrence: IT)
  Receive Date: 20161117
  Receipt Date: 20161117
  Transmission Date: 20170207
  Serious: Yes (Hospitalization)
  Sender: FDA-Public Use
  Company Number: IT-TEVA-712064ACC

PATIENT
  Age: 29 Year
  Sex: Female
  Weight: 37 kg

DRUGS (1)
  1. CIQORIN - TEVA ITALIA S.R.L. [Suspect]
     Active Substance: CYCLOSPORINE
     Indication: RHEUMATOID ARTHRITIS
     Dates: start: 20160401, end: 20160601

REACTIONS (4)
  - Systemic lupus erythematosus [Recovering/Resolving]
  - Rheumatoid arthritis [Recovering/Resolving]
  - Rheumatoid arthritis [None]
  - Cutaneous lupus erythematosus [None]

NARRATIVE: CASE EVENT DATE: 20160515
